FAERS Safety Report 22539554 (Version 3)
Quarter: 2024Q2

REPORT INFORMATION
  Report Type: Spontaneous
  Country: AU (occurrence: AU)
  Receive Date: 20230609
  Receipt Date: 20240508
  Transmission Date: 20240716
  Serious: Yes (Hospitalization, Other)
  Sender: FDA-Public Use
  Company Number: AU-ORGANON-O2305AUS002896

PATIENT
  Age: 38 Year
  Sex: Female
  Weight: 55 kg

DRUGS (4)
  1. CORIFOLLITROPIN ALFA [Suspect]
     Active Substance: CORIFOLLITROPIN ALFA
     Indication: Ovulation induction
     Dosage: ONE DOSE OF 150 MCG (SINGLE/STAT DOSE)
     Route: 058
     Dates: start: 20230517, end: 20230517
  2. FOLLITROPIN BETA [Suspect]
     Active Substance: FOLLITROPIN BETA
     Indication: Ovulation induction
     Dosage: 400 UNITS DAILY
     Route: 058
     Dates: start: 20230524, end: 20230524
  3. FOLLITROPIN BETA [Suspect]
     Active Substance: FOLLITROPIN BETA
     Dosage: 200 UNITS DAILY
     Route: 058
     Dates: start: 20230525, end: 20230527
  4. ORGALUTRAN [Suspect]
     Active Substance: GANIRELIX ACETATE
     Dosage: DAILY DOSING OF 250 MCG
     Route: 058
     Dates: start: 20230521, end: 20230527

REACTIONS (4)
  - Therapeutic product effect incomplete [Unknown]
  - Ovarian hyperstimulation syndrome [Unknown]
  - Dehydration [Recovered/Resolved]
  - Hormone level abnormal [Unknown]

NARRATIVE: CASE EVENT DATE: 20230101
